FAERS Safety Report 7708736-1 (Version None)
Quarter: 2011Q3

REPORT INFORMATION
  Report Type: 
  Country: None (occurrence: None)
  Receive Date: 20110825
  Receipt Date: 20110825
  Transmission Date: 20111222
  Serious: Yes (Other)
  Sender: FDA-Public Use
  Company Number: None

PATIENT
  Sex: Female

DRUGS (4)
  1. NORVASC [Concomitant]
  2. SEROQUEL [Suspect]
     Indication: DRUG THERAPY CHANGED
     Dosage: ONE TABLET
  3. ATENOLOL [Concomitant]
  4. LEXAPRO [Concomitant]

REACTIONS (6)
  - CHEST PAIN [None]
  - CHEST DISCOMFORT [None]
  - HEART RATE DECREASED [None]
  - FEELING ABNORMAL [None]
  - DRUG HYPERSENSITIVITY [None]
  - EXTRASYSTOLES [None]
